FAERS Safety Report 8949717 (Version 1)
Quarter: 2012Q4

REPORT INFORMATION
  Report Type: Report from Study
  Country: JP (occurrence: JP)
  Receive Date: 20121206
  Receipt Date: 20121206
  Transmission Date: 20130627
  Serious: Yes (Other)
  Sender: FDA-Public Use
  Company Number: JP-VERTEX PHARMACEUTICALS INC.-AE-2012-011605

PATIENT
  Age: 41 Year
  Sex: Male

DRUGS (6)
  1. VX-950 (TELAPREVIR) [Suspect]
     Indication: CHRONIC HEPATITIS C
     Dosage: 2250 mg, qd
     Route: 048
     Dates: start: 20120419, end: 20120711
  2. VX-950 (TELAPREVIR) [Suspect]
     Dosage: UNK
  3. PEGINTERFERON ALFA-2B [Suspect]
     Indication: CHRONIC HEPATITIS C
     Dosage: 100 ?g, qw
     Route: 058
     Dates: start: 20120419, end: 20120620
  4. PEGINTERFERON ALFA-2B [Suspect]
     Dosage: 80 ?g, qw
     Route: 058
     Dates: start: 20120621, end: 20120711
  5. PEGINTERFERON ALFA-2B [Suspect]
     Dosage: 100 ?g, qw
     Route: 058
     Dates: start: 20120712
  6. RIBAVIRIN [Concomitant]
     Dosage: 800 mg, qd
     Route: 048
     Dates: start: 20120419

REACTIONS (1)
  - Neutrophil count decreased [Recovered/Resolved]
